FAERS Safety Report 6987252-9 (Version None)
Quarter: 2010Q3

REPORT INFORMATION
  Report Type: 
  Country: None (occurrence: None)
  Receive Date: 20100827
  Receipt Date: 20100622
  Transmission Date: 20110219
  Serious: No
  Sender: FDA-Public Use
  Company Number: 015775

PATIENT

DRUGS (1)
  1. LACOSAMIDE [Suspect]
     Dates: start: 20090601, end: 20090901

REACTIONS (2)
  - DIZZINESS [None]
  - OFF LABEL USE [None]
